FAERS Safety Report 10094505 (Version 3)
Quarter: 2014Q2

REPORT INFORMATION
  Report Type: Spontaneous
  Country: US (occurrence: US)
  Receive Date: 20140422
  Receipt Date: 20140610
  Transmission Date: 20141212
  Serious: Yes (Other)
  Sender: FDA-Public Use
  Company Number: US-ASTRAZENECA-2010SE42737

PATIENT
  Age: 80 Year
  Sex: Female
  Weight: 80.7 kg

DRUGS (11)
  1. NEXIUM [Suspect]
     Indication: GASTROOESOPHAGEAL REFLUX DISEASE
     Route: 048
     Dates: start: 2010, end: 20140409
  2. NEXIUM [Suspect]
     Indication: GASTROOESOPHAGEAL REFLUX DISEASE
     Route: 048
     Dates: start: 2010, end: 20140409
  3. NEXIUM [Suspect]
     Indication: GASTROOESOPHAGEAL REFLUX DISEASE
     Route: 048
     Dates: start: 2013
  4. NEXIUM [Suspect]
     Indication: GASTROOESOPHAGEAL REFLUX DISEASE
     Route: 048
     Dates: start: 2013
  5. ONGLYZA [Suspect]
     Route: 048
  6. EMPIDE [Concomitant]
     Indication: DIABETES MELLITUS
     Route: 048
  7. EMPIDE [Concomitant]
     Indication: DIABETES MELLITUS
     Route: 048
  8. LOVASTATIN [Concomitant]
     Indication: BLOOD CHOLESTEROL ABNORMAL
     Route: 048
  9. LOVASTATIN [Concomitant]
     Indication: BLOOD CHOLESTEROL ABNORMAL
     Dosage: FEW YEARS AGO
  10. AMLODIPINE [Concomitant]
     Indication: HYPERTENSION
     Route: 048
  11. AMLODIPINE [Concomitant]
     Indication: HYPERTENSION
     Dosage: YEARS AGO

REACTIONS (9)
  - Cardiac failure [Unknown]
  - Dyspepsia [Not Recovered/Not Resolved]
  - Gastric disorder [Unknown]
  - Chest discomfort [Unknown]
  - Gastrooesophageal reflux disease [Unknown]
  - Body height decreased [Unknown]
  - Abdominal pain upper [Unknown]
  - Flatulence [Unknown]
  - Drug dose omission [Not Recovered/Not Resolved]
